FAERS Safety Report 10298245 (Version 1)
Quarter: 2014Q3

REPORT INFORMATION
  Report Type: Spontaneous
  Country: US (occurrence: US)
  Receive Date: 20140711
  Receipt Date: 20140711
  Transmission Date: 20150326
  Serious: No
  Sender: FDA-Public Use
  Company Number: US-GLAXOSMITHKLINE-A1062754A

PATIENT
  Age: 55 Year
  Sex: Female

DRUGS (1)
  1. FLOVENT [Suspect]
     Active Substance: FLUTICASONE PROPIONATE
     Indication: ASTHMA
     Dosage: 220MCG UNKNOWN
     Route: 055
     Dates: start: 20130723

REACTIONS (2)
  - Laryngitis [Unknown]
  - Dyspnoea [Unknown]
